FAERS Safety Report 23714945 (Version 1)
Quarter: 2024Q2

REPORT INFORMATION
  Report Type: Spontaneous
  Country: US (occurrence: None)
  Receive Date: 20240406
  Receipt Date: 20240406
  Transmission Date: 20240716
  Serious: No
  Sender: FDA-Public Use
  Company Number: 2024A067600

PATIENT

DRUGS (1)
  1. BRILINTA [Suspect]
     Active Substance: TICAGRELOR
     Indication: Stent placement
     Route: 048

REACTIONS (6)
  - Stent placement [Unknown]
  - Asthenia [Unknown]
  - Stress [Unknown]
  - Dysphonia [Unknown]
  - Anxiety [Unknown]
  - Angina pectoris [Unknown]
